FAERS Safety Report 16682428 (Version 2)
Quarter: 2019Q4

REPORT INFORMATION
  Report Type: Report from Study
  Country: IT (occurrence: IT)
  Receive Date: 20190808
  Receipt Date: 20191007
  Transmission Date: 20200122
  Serious: Yes (Other)
  Sender: FDA-Public Use
  Company Number: IT-PFIZER INC-2019334056

PATIENT
  Age: 26 Year
  Sex: Female

DRUGS (2)
  1. ROCEFIN [Suspect]
     Active Substance: CEFTRIAXONE SODIUM
     Indication: PNEUMONITIS
     Dosage: 1 DF, TOTAL
     Route: 030
     Dates: start: 20190704, end: 20190705
  2. ZITROMAX [Suspect]
     Active Substance: AZITHROMYCIN
     Indication: PNEUMONITIS
     Dosage: 1 DF, TOTAL
     Route: 048
     Dates: start: 20190704, end: 20190705

REACTIONS (5)
  - Dermatitis allergic [Recovering/Resolving]
  - Cough [Recovering/Resolving]
  - Lip oedema [Recovering/Resolving]
  - Pruritus [Recovering/Resolving]
  - Dysphonia [Recovering/Resolving]

NARRATIVE: CASE EVENT DATE: 20190704
